FAERS Safety Report 25298640 (Version 2)
Quarter: 2025Q2

REPORT INFORMATION
  Report Type: Report from Study
  Country: ZA (occurrence: ZA)
  Receive Date: 20250512
  Receipt Date: 20250527
  Transmission Date: 20250716
  Serious: Yes (Hospitalization)
  Sender: CELLTRION
  Company Number: ZA-CELLTRION INC.-2022ZA015982

PATIENT

DRUGS (2)
  1. INFLIXIMAB-DYYB [Suspect]
     Active Substance: INFLIXIMAB-DYYB
     Indication: Crohn^s disease
     Route: 042
  2. INFLIXIMAB-DYYB [Suspect]
     Active Substance: INFLIXIMAB-DYYB
     Indication: Colitis ulcerative

REACTIONS (4)
  - Hospitalisation [Unknown]
  - Condition aggravated [Unknown]
  - Fistula [Unknown]
  - Overdose [Unknown]

NARRATIVE: CASE EVENT DATE: 20220923
